FAERS Safety Report 24135683 (Version 1)
Quarter: 2024Q3

REPORT INFORMATION
  Report Type: Report from Study
  Country: BR (occurrence: BR)
  Receive Date: 20240725
  Receipt Date: 20240725
  Transmission Date: 20241016
  Serious: Yes (Hospitalization, Other)
  Sender: JOHNSON AND JOHNSON
  Company Number: BR-JNJFOC-20240749932

PATIENT
  Age: 74 Year
  Sex: Male
  Weight: 66 kg

DRUGS (1)
  1. INFLIXIMAB [Suspect]
     Active Substance: INFLIXIMAB
     Indication: Rheumatoid arthritis
     Route: 041
     Dates: start: 20171002

REACTIONS (10)
  - Nausea [Recovered/Resolved]
  - Dementia [Not Recovered/Not Resolved]
  - Syncope [Recovered/Resolved]
  - Fall [Unknown]
  - Pneumonia [Recovered/Resolved]
  - Rheumatoid arthritis [Not Recovered/Not Resolved]
  - Seizure [Recovered/Resolved]
  - Dengue fever [Recovered/Resolved]
  - Rib fracture [Recovering/Resolving]
  - COVID-19 [Recovered/Resolved]

NARRATIVE: CASE EVENT DATE: 20220901
